FAERS Safety Report 5805329-8 (Version None)
Quarter: 2008Q3

REPORT INFORMATION
  Report Type: 
  Country: None (occurrence: None)
  Receive Date: 20080709
  Receipt Date: 20080701
  Transmission Date: 20090109
  Serious: Yes (Other)
  Sender: FDA-Public Use
  Company Number: US-ELI_LILLY_AND_COMPANY-US200807000392

PATIENT
  Age: 77 Year
  Sex: Male

DRUGS (3)
  1. HUMULIN 70/30 [Suspect]
  2. CHOLESTEROL [Concomitant]
  3. VITAMIN TAB [Concomitant]

REACTIONS (3)
  - HIP ARTHROPLASTY [None]
  - PROSTATIC OPERATION [None]
  - VISUAL ACUITY REDUCED [None]
